FAERS Safety Report 8241284-1 (Version None)
Quarter: 2012Q1

REPORT INFORMATION
  Report Type: 
  Country: None (occurrence: None)
  Receive Date: 20120309
  Receipt Date: 20110322
  Transmission Date: 20120608
  Serious: Yes (Other)
  Sender: FDA-Public Use
  Company Number: PHHY2011US24841

PATIENT
  Sex: Female

DRUGS (1)
  1. EXTAVIA [Suspect]
     Indication: MULTIPLE SCLEROSIS
     Dosage: 0.25 MG, 2-3 TIMES A WEEK, SUBCUTANEOUS UNK UKN, UNK
     Route: 058
     Dates: start: 20100901

REACTIONS (1)
  - MULTIPLE SCLEROSIS RELAPSE [None]
